FAERS Safety Report 8157803 (Version 3)
Quarter: 2013Q1

REPORT INFORMATION
  Report Type: Spontaneous
  Country: GB (occurrence: GB)
  Receive Date: 20110927
  Receipt Date: 20130118
  Transmission Date: 20140127
  Serious: Yes (Other)
  Sender: FDA-Public Use
  Company Number: GB-PFIZER INC-2011222639

PATIENT
  Age: 1 Month
  Sex: Male
  Weight: 5 kg

DRUGS (1)
  1. REFACTO AF [Suspect]
     Indication: FACTOR VIII DEFICIENCY
     Dosage: 200 IU/KG, EVERY 48 HOURS
     Dates: start: 20110914

REACTIONS (1)
  - Factor VIII inhibition [Recovered/Resolved]
